FAERS Safety Report 5298913-4 (Version None)
Quarter: 2007Q2

REPORT INFORMATION
  Report Type: 
  Country: None (occurrence: None)
  Receive Date: 20070410
  Receipt Date: 20070328
  Transmission Date: 20071010
  Serious: Yes (Death, Other)
  Sender: FDA-Public Use
  Company Number: 239114

PATIENT
  Sex: Female

DRUGS (5)
  1. MABTHERA (RITUXIMAB) CONCENTRATE FOR SOLUTION FOR INFUSION [Suspect]
     Indication: AUTOIMMUNE DISORDER
     Dosage: 375 MG/M2, 1/WEEK, INTRAVENOUS
     Route: 042
  2. MYCOPHENOLATE MOFETIL [Concomitant]
  3. PREDNISONE TAB [Concomitant]
  4. ACETAMINOPHEN [Concomitant]
  5. DIPHENHYDRAMINE (DIPHENHYDRAMINE NOS) [Concomitant]

REACTIONS (1)
  - SYSTEMIC LUPUS ERYTHEMATOSUS [None]
